FAERS Safety Report 7490778 (Version 4)
Quarter: 2013Q3

REPORT INFORMATION
  Report Type: Report from Study
  Country: UG (occurrence: UG)
  Receive Date: 20100720
  Receipt Date: 20130719
  Transmission Date: 20140515
  Serious: Yes (Death, Hospitalization, Other)
  Sender: FDA-Public Use
  Company Number: UG-ABBOTT-10P-167-0657299-00

PATIENT
  Sex: Female

DRUGS (4)
  1. ALUVIA TABLETS [Suspect]
     Indication: HIV INFECTION
     Route: 048
     Dates: start: 20100513, end: 20100713
  2. RALTEGRAVIR [Concomitant]
     Indication: HIV INFECTION
     Dates: start: 20100513, end: 20100713
  3. AMOXICILLIN [Concomitant]
     Indication: PRODUCT USED FOR UNKNOWN INDICATION
     Dates: start: 20100610, end: 20100615
  4. COTRIMAXAZOLE [Concomitant]
     Indication: PRODUCT USED FOR UNKNOWN INDICATION
     Dates: start: 20050518

REACTIONS (10)
  - Hepatic failure [Fatal]
  - Thrombocytopenia [Fatal]
  - Bacterial sepsis [Fatal]
  - Renal disorder [Unknown]
  - Hepatitis B [Unknown]
  - Jaundice [Not Recovered/Not Resolved]
  - Cheilitis [Unknown]
  - Hypersensitivity [Fatal]
  - Diarrhoea [Not Recovered/Not Resolved]
  - Vomiting [Not Recovered/Not Resolved]
